APPROVED DRUG PRODUCT: ADVIL DUAL ACTION WITH ACETAMINOPHEN
Active Ingredient: ACETAMINOPHEN; IBUPROFEN
Strength: 250MG;125MG
Dosage Form/Route: TABLET;ORAL
Application: N211733 | Product #001
Applicant: HALEON US HOLDINGS LLC
Approved: Feb 28, 2020 | RLD: Yes | RS: Yes | Type: OTC

PATENTS:
Patent 11918693 | Expires: Jul 9, 2041